FAERS Safety Report 13719766 (Version 2)
Quarter: 2017Q3

REPORT INFORMATION
  Report Type: Spontaneous
  Country: JP (occurrence: JP)
  Receive Date: 20170705
  Receipt Date: 20170717
  Transmission Date: 20171127
  Serious: Yes (Death, Other)
  Sender: FDA-Public Use
  Company Number: JP-PFM-2017-03391

PATIENT

DRUGS (9)
  1. FILGRASTIM [Concomitant]
     Active Substance: FILGRASTIM
     Indication: WHITE BLOOD CELL COUNT DECREASED
     Dosage: 75 ?G
     Route: 030
     Dates: start: 20170416, end: 20170418
  2. GEMCITABINE [Suspect]
     Active Substance: GEMCITABINE\GEMCITABINE HYDROCHLORIDE
     Indication: NON-SMALL CELL LUNG CANCER
     Dosage: 1400 MG
     Route: 041
     Dates: start: 20151208
  3. NAVELBINE [Suspect]
     Active Substance: VINORELBINE TARTRATE
     Dosage: 30 MG
     Route: 041
     Dates: start: 20170404, end: 20170404
  4. GEMCITABINE [Suspect]
     Active Substance: GEMCITABINE\GEMCITABINE HYDROCHLORIDE
     Dosage: 1400 MG
     Route: 041
     Dates: start: 20170404, end: 20170404
  5. GEMCITABINE [Suspect]
     Active Substance: GEMCITABINE\GEMCITABINE HYDROCHLORIDE
     Dosage: 1400 MG
     Route: 041
  6. NAVELBINE [Suspect]
     Active Substance: VINORELBINE TARTRATE
     Dosage: 30 MG
     Route: 040
  7. NAVELBINE [Suspect]
     Active Substance: VINORELBINE TARTRATE
     Indication: NON-SMALL CELL LUNG CANCER
     Dosage: 30 MG
     Route: 041
     Dates: start: 20151208
  8. GEMCITABINE [Suspect]
     Active Substance: GEMCITABINE\GEMCITABINE HYDROCHLORIDE
     Dosage: 1400 MG
     Route: 041
     Dates: start: 20170411, end: 20170411
  9. NAVELBINE [Suspect]
     Active Substance: VINORELBINE TARTRATE
     Dosage: 30 MG
     Route: 041
     Dates: start: 20170411, end: 20170411

REACTIONS (4)
  - Pancytopenia [Fatal]
  - Diarrhoea [Recovered/Resolved]
  - Multiple organ dysfunction syndrome [Fatal]
  - Generalised oedema [Unknown]

NARRATIVE: CASE EVENT DATE: 20170414
